FAERS Safety Report 9168173 (Version 2)
Quarter: 2013Q1

REPORT INFORMATION
  Report Type: Spontaneous
  Country: ZA (occurrence: None)
  Receive Date: 20130307
  Receipt Date: 20130312
  Transmission Date: 20140127
  Serious: Yes (Hospitalization)
  Sender: FDA-Public Use
  Company Number: SYM-2013-01274

PATIENT
  Age: 40 Year
  Sex: Male

DRUGS (3)
  1. BUPROPION [Suspect]
     Indication: SMOKING CESSATION THERAPY
     Route: 048
     Dates: start: 20121010, end: 20121102
  2. VARENICLINE TARTRATE [Suspect]
     Indication: SMOKING CESSATION THERAPY
     Route: 048
     Dates: start: 20121010, end: 20121102
  3. NICOTINE PATCH [Suspect]
     Indication: SMOKING CESSATION THERAPY
     Route: 062
     Dates: start: 20121017, end: 20121102

REACTIONS (4)
  - Major depression [None]
  - Post-traumatic stress disorder [None]
  - Borderline personality disorder [None]
  - Suicidal ideation [None]
